FAERS Safety Report 7241435-1 (Version None)
Quarter: 2011Q1

REPORT INFORMATION
  Report Type: 
  Country: None (occurrence: None)
  Receive Date: 20110124
  Receipt Date: 20110111
  Transmission Date: 20110831
  Serious: Yes (Other)
  Sender: FDA-Public Use
  Company Number: GXKR2006GB04788

PATIENT
  Age: 71 Year
  Sex: Male

DRUGS (9)
  1. DEXTROPROPOXYPHENE HCL W/PARACETAMOL [Concomitant]
     Dosage: 4 DF/DAY
     Route: 048
     Dates: start: 20021015, end: 20060111
  2. ACETAMINOPHEN [Concomitant]
     Dosage: 1 DF, QID
     Route: 048
     Dates: start: 20021015, end: 20060111
  3. DOTHIEPIN [Concomitant]
     Dosage: UNK
     Route: 048
     Dates: start: 20050314, end: 20060111
  4. SIMVASTATIN [Suspect]
     Indication: HYPERCHOLESTEROLAEMIA
     Dosage: 10 MG, QD
     Route: 048
     Dates: start: 20020210, end: 20030121
  5. ACETYLSALICYLIC ACID [Concomitant]
     Indication: TRANSIENT GLOBAL AMNESIA
     Dosage: 75 MG, QD
     Route: 048
     Dates: start: 20050715
  6. SIMVASTATIN [Suspect]
     Dosage: 28 X 20MG TABLETS
  7. SIMVASTATIN [Suspect]
     Dosage: 10 MG, QD
     Route: 048
     Dates: start: 20031212, end: 20060322
  8. ANXIOLYTICS [Concomitant]
     Route: 065
  9. ACETYLSALICYLIC ACID [Concomitant]
     Indication: TRANSIENT ISCHAEMIC ATTACK

REACTIONS (6)
  - ALOPECIA [None]
  - SUICIDE ATTEMPT [None]
  - AMNESIA [None]
  - ERECTILE DYSFUNCTION [None]
  - LOSS OF CONSCIOUSNESS [None]
  - INTENTIONAL OVERDOSE [None]
